FAERS Safety Report 9469237 (Version 2)
Quarter: 2013Q4

REPORT INFORMATION
  Report Type: Spontaneous
  Country: US (occurrence: US)
  Receive Date: 20130821
  Receipt Date: 20131024
  Transmission Date: 20140711
  Serious: Yes (Death, Other)
  Sender: FDA-Public Use
  Company Number: US-TEVA-427461USA

PATIENT
  Sex: Male

DRUGS (22)
  1. WARFARIN [Suspect]
     Dosage: 6 MILLIGRAM DAILY;
     Route: 048
  2. SUNITINIB MALATE [Suspect]
     Dosage: 50 MILLIGRAM DAILY; 4 WEEKS ON 2 WEEKS OFF
     Route: 048
  3. ASCORBIC ACID [Concomitant]
     Dosage: 500 MILLIGRAM DAILY;
     Route: 048
  4. COLECALCIFEROL [Concomitant]
     Dosage: 2 IU (INTERNATIONAL UNIT) DAILY;
     Route: 048
  5. ATORVASTATIN CALCIUM [Concomitant]
     Dosage: 40 MILLIGRAM DAILY;
     Route: 048
  6. CARDURA [Concomitant]
     Dosage: 8 MILLIGRAM DAILY;
  7. FOLIC ACID [Concomitant]
     Dosage: 1 MILLIGRAM DAILY;
     Route: 048
  8. GLUCOTROL [Concomitant]
     Dosage: 5 MILLIGRAM DAILY;
     Route: 048
  9. FINASTERIDE [Concomitant]
     Dosage: 5 MILLIGRAM DAILY;
     Route: 048
  10. HYDROCHLOROTHIAZIDE [Concomitant]
     Dosage: 12.5 MILLIGRAM DAILY;
     Route: 048
  11. GLUCOSAMINE [Concomitant]
     Dosage: 2 TABS DAILY
     Route: 048
  12. CHONDROITIN [Concomitant]
  13. COZAAR [Concomitant]
     Dosage: 100 MILLIGRAM DAILY;
     Route: 048
  14. MULTIVITAMINS [Concomitant]
     Dosage: ONE DAILY
     Route: 048
  15. FISH OIL [Concomitant]
     Dosage: ONE CAPSULE DAILY
     Route: 048
  16. K-DUR [Concomitant]
     Dosage: 20 MILLIEQUIVALENTS DAILY;
     Route: 048
  17. ALENDRONATE SODIUM [Concomitant]
  18. RETINOL [Concomitant]
     Dosage: 8 IU (INTERNATIONAL UNIT) DAILY;
     Route: 048
  19. CINNAMON [Concomitant]
     Dosage: 1 MILLIGRAM DAILY;
     Route: 048
  20. CIPRO [Concomitant]
     Dosage: 1000 MILLIGRAM DAILY;
     Route: 048
  21. TRIPLE SWISH SOLUTION [Concomitant]
     Dosage: 5-15 ML TWICE A DAY
     Route: 048
  22. FLOMAX [Concomitant]
     Dosage: .4 MILLIGRAM DAILY;
     Route: 048

REACTIONS (2)
  - Death [Fatal]
  - Rash [Unknown]
